FAERS Safety Report 9944075 (Version 2)
Quarter: 2015Q3

REPORT INFORMATION
  Report Type: Spontaneous
  Country: US (occurrence: US)
  Receive Date: 20140303
  Receipt Date: 20150730
  Transmission Date: 20151125
  Serious: No
  Sender: FDA-Public Use
  Company Number: US-GILEAD-2012-0056154

PATIENT
  Age: 76 Year
  Sex: Male
  Weight: 104.76 kg

DRUGS (9)
  1. CLARITIN [Concomitant]
     Active Substance: LORATADINE
  2. LIPITOR [Concomitant]
     Active Substance: ATORVASTATIN CALCIUM
  3. PLAVIX [Concomitant]
     Active Substance: CLOPIDOGREL BISULFATE
  4. ASPIRIN. [Concomitant]
     Active Substance: ASPIRIN
  5. DEXILANT [Concomitant]
     Active Substance: DEXLANSOPRAZOLE
  6. LISINOPRIL. [Concomitant]
     Active Substance: LISINOPRIL
  7. NADOLOL. [Concomitant]
     Active Substance: NADOLOL
  8. RANEXA [Suspect]
     Active Substance: RANOLAZINE
     Indication: PRODUCT USED FOR UNKNOWN INDICATION
  9. SENNA PLUS                         /00142201/ [Concomitant]

REACTIONS (1)
  - Muscle spasms [Recovered/Resolved]

NARRATIVE: CASE EVENT DATE: 20120321
